FAERS Safety Report 12528549 (Version 3)
Quarter: 2017Q3

REPORT INFORMATION
  Report Type: Spontaneous
  Country: ES (occurrence: ES)
  Receive Date: 20160705
  Receipt Date: 20170811
  Transmission Date: 20171127
  Serious: Yes (Other)
  Sender: FDA-Public Use
  Company Number: ES-CELGENEUS-ESP-2015071036

PATIENT
  Age: 78 Year
  Sex: Male

DRUGS (14)
  1. REVLIMID [Suspect]
     Active Substance: LENALIDOMIDE
     Route: 048
  2. NEORRECORMON [Concomitant]
     Dosage: 30000 UI (WEDNESDAY) + 10000 UI (SUNDAY)
     Route: 065
     Dates: start: 20160620
  3. NIVESTIM [Concomitant]
     Active Substance: FILGRASTIM
     Indication: PRODUCT USED FOR UNKNOWN INDICATION
     Route: 065
     Dates: start: 20150706, end: 20160718
  4. NEORRECORMON [Concomitant]
     Route: 065
     Dates: start: 20160523, end: 20160620
  5. PHOSPHATE SANDOZ FORTE [Concomitant]
     Route: 065
     Dates: start: 20150507, end: 20150511
  6. DARATUMUMAB [Suspect]
     Active Substance: DARATUMUMAB
     Indication: PLASMA CELL MYELOMA RECURRENT
     Route: 048
  7. NEORRECORMON [Concomitant]
     Indication: PRODUCT USED FOR UNKNOWN INDICATION
     Route: 065
     Dates: start: 20150427, end: 20150629
  8. PHOSPHATE SANDOZ FORTE [Concomitant]
     Route: 065
     Dates: start: 20150512, end: 20151026
  9. PHOSPHATE SANDOZ FORTE [Concomitant]
     Indication: PRODUCT USED FOR UNKNOWN INDICATION
     Route: 065
     Dates: start: 20151026, end: 20160620
  10. PHOSPHATE SANDOZ FORTE [Concomitant]
     Route: 065
     Dates: start: 20160621
  11. REVLIMID [Suspect]
     Active Substance: LENALIDOMIDE
     Indication: PLASMA CELL MYELOMA RECURRENT
     Route: 048
     Dates: end: 20150621
  12. DEXAMETHASONE. [Suspect]
     Active Substance: DEXAMETHASONE
     Indication: PLASMA CELL MYELOMA RECURRENT
     Route: 048
  13. NEORRECORMON [Concomitant]
     Route: 065
     Dates: start: 20150629, end: 20150831
  14. NEORRECORMON [Concomitant]
     Route: 065
     Dates: start: 20150831, end: 20160523

REACTIONS (9)
  - Rash [Not Recovered/Not Resolved]
  - Hypophosphataemia [Recovered/Resolved]
  - Platelet count decreased [Recovered/Resolved]
  - Electrocardiogram QT prolonged [Not Recovered/Not Resolved]
  - Electrolyte imbalance [Recovered/Resolved]
  - Anaemia [Recovered/Resolved]
  - Electrocardiogram QT prolonged [Recovered/Resolved]
  - Hypophosphataemia [Recovered/Resolved]
  - Neutropenia [Recovered/Resolved]

NARRATIVE: CASE EVENT DATE: 20150119
